FAERS Safety Report 23993764 (Version 1)
Quarter: 2024Q2

REPORT INFORMATION
  Report Type: Spontaneous
  Country: FR (occurrence: FR)
  Receive Date: 20240620
  Receipt Date: 20240620
  Transmission Date: 20240716
  Serious: Yes (Other)
  Sender: FDA-Public Use
  Company Number: FR-SUN PHARMACEUTICAL INDUSTRIES LTD-2024RR-452535

PATIENT
  Age: 75 Year
  Sex: Female

DRUGS (3)
  1. RISPERIDONE [Suspect]
     Active Substance: RISPERIDONE
     Indication: Wrong patient
     Dosage: 4 MILLIGRAM, DAILY
     Route: 048
     Dates: start: 20240310, end: 20240310
  2. OXAZEPAM [Suspect]
     Active Substance: OXAZEPAM
     Indication: Wrong patient
     Dosage: 10 MILLIGRAM, DAILY
     Route: 048
     Dates: start: 20240310, end: 20240310
  3. CYAMEMAZINE [Suspect]
     Active Substance: CYAMEMAZINE
     Indication: Wrong patient
     Dosage: 30 MILLIGRAM, DAILY
     Route: 048
     Dates: start: 20240310, end: 20240310

REACTIONS (2)
  - Hypotension [Recovered/Resolved]
  - Movement disorder [Recovered/Resolved]

NARRATIVE: CASE EVENT DATE: 20240310
